FAERS Safety Report 7207752-6 (Version None)
Quarter: 2011Q1

REPORT INFORMATION
  Report Type: 
  Country: None (occurrence: None)
  Receive Date: 20110103
  Receipt Date: 20101220
  Transmission Date: 20110831
  Serious: Yes (Life-Threatening, Other)
  Sender: FDA-Public Use
  Company Number: GB-MYLANLABS-2010S1023274

PATIENT
  Age: 50 Year
  Sex: Male

DRUGS (1)
  1. TRAZODONE HYDROCHLORIDE [Suspect]
     Indication: DEPRESSION
     Route: 048
     Dates: start: 20100701, end: 20101025

REACTIONS (2)
  - HEPATITIS ACUTE [None]
  - NECROSIS [None]
